FAERS Safety Report 26055098 (Version 1)
Quarter: 2025Q4

REPORT INFORMATION
  Report Type: Spontaneous
  Country: US (occurrence: US)
  Receive Date: 20251117
  Receipt Date: 20251117
  Transmission Date: 20260118
  Serious: Yes (Other)
  Sender: NOVO NORDISK
  Company Number: US-NOVOPROD-1563770

PATIENT
  Age: 65 Year
  Sex: Female
  Weight: 66.678 kg

DRUGS (2)
  1. FIASP [Suspect]
     Active Substance: INSULIN ASPART
     Indication: Type 2 diabetes mellitus
     Dosage: SLIDING DOSE
     Route: 058
     Dates: start: 2018
  2. LEVEMIR [Suspect]
     Active Substance: INSULIN DETEMIR
     Indication: Type 2 diabetes mellitus
     Dosage: UNK
     Route: 058

REACTIONS (1)
  - Varicose vein operation [Recovered/Resolved]

NARRATIVE: CASE EVENT DATE: 20190101
